FAERS Safety Report 9289581 (Version 2)
Quarter: 2013Q4

REPORT INFORMATION
  Report Type: Spontaneous
  Country: BR (occurrence: BR)
  Receive Date: 20130515
  Receipt Date: 20131014
  Transmission Date: 20140711
  Serious: Yes (Other)
  Sender: FDA-Public Use
  Company Number: BR-AMGEN-BRASP2013033397

PATIENT
  Age: 39 Year
  Sex: Female
  Weight: 40 kg

DRUGS (7)
  1. ENBREL [Suspect]
     Indication: PSORIATIC ARTHROPATHY
     Dosage: 50 MG, ONCE WEEKLY
     Route: 058
     Dates: start: 201203, end: 201209
  2. ENBREL [Suspect]
     Dosage: 50 MG, ONCE WEEKLY
     Route: 058
  3. METHOTREXATE SODIUM [Suspect]
     Indication: PRODUCT USED FOR UNKNOWN INDICATION
     Dosage: 0.6 ML, ONCE WEEKLY
     Route: 065
     Dates: end: 2013
  4. PONSTAN [Concomitant]
     Dosage: UNK
  5. BUSCOPAN [Concomitant]
     Dosage: UNK
  6. PRELONE                            /00016201/ [Concomitant]
     Indication: ALLERGIC COUGH
     Dosage: UNK
  7. FOLIC ACID [Concomitant]
     Dosage: UNK

REACTIONS (9)
  - Psoriatic arthropathy [Not Recovered/Not Resolved]
  - Dizziness [Unknown]
  - Vertigo [Unknown]
  - Pain in extremity [Unknown]
  - Back pain [Unknown]
  - Arthralgia [Unknown]
  - Panic disorder [Unknown]
  - Palpitations [Recovered/Resolved]
  - Swelling [Unknown]
